FAERS Safety Report 7935332 (Version 2)
Quarter: 2013Q3

REPORT INFORMATION
  Report Type: Spontaneous
  Country: US (occurrence: US)
  Receive Date: 20110509
  Receipt Date: 20130903
  Transmission Date: 20140515
  Serious: Yes (Other)
  Sender: FDA-Public Use
  Company Number: US-ROCHE-695901

PATIENT
  Age: 30 Year
  Sex: Female
  Weight: 58.1 kg

DRUGS (1)
  1. ACCUTANE [Suspect]
     Indication: ACNE
     Route: 065
     Dates: start: 199909, end: 199911

REACTIONS (6)
  - Crohn^s disease [Unknown]
  - Colitis ulcerative [Unknown]
  - Inflammatory bowel disease [Not Recovered/Not Resolved]
  - Depression [Unknown]
  - Intestinal obstruction [Not Recovered/Not Resolved]
  - Irritable bowel syndrome [Unknown]
